FAERS Safety Report 24229553 (Version 2)
Quarter: 2024Q3

REPORT INFORMATION
  Report Type: Report from Study
  Country: US (occurrence: US)
  Receive Date: 20240820
  Receipt Date: 20240930
  Transmission Date: 20241017
  Serious: Yes (Other)
  Sender: BIOGEN
  Company Number: US-BIOGEN-2024BI01278044

PATIENT
  Sex: Female

DRUGS (1)
  1. VUMERITY [Suspect]
     Active Substance: DIROXIMEL FUMARATE
     Indication: Multiple sclerosis
     Dosage: MAINTENANCE DOSE
     Route: 050

REACTIONS (18)
  - Brain neoplasm [Unknown]
  - Product dose omission in error [Unknown]
  - Spinal osteoarthritis [Unknown]
  - Neuropathy peripheral [Unknown]
  - Fatigue [Unknown]
  - Central nervous system lesion [Unknown]
  - Hypertension [Unknown]
  - Paraesthesia [Unknown]
  - Hypoaesthesia [Unknown]
  - Sciatica [Unknown]
  - Headache [Unknown]
  - Eye disorder [Unknown]
  - Aphasia [Unknown]
  - Central nervous system lesion [Unknown]
  - Feeling abnormal [Unknown]
  - Cognitive disorder [Unknown]
  - Mental impairment [Unknown]
  - Dyspepsia [Unknown]

NARRATIVE: CASE EVENT DATE: 20170101
